FAERS Safety Report 10271920 (Version 1)
Quarter: 2014Q3

REPORT INFORMATION
  Report Type: Report from Study
  Country: IN (occurrence: IN)
  Receive Date: 20140702
  Receipt Date: 20140702
  Transmission Date: 20150326
  Serious: Yes (Hospitalization)
  Sender: FDA-Public Use
  Company Number: PHHY2014IN079891

PATIENT
  Age: 8 Year
  Sex: Female

DRUGS (2)
  1. ASUNRA [Suspect]
     Active Substance: DEFERASIROX
     Indication: IRON OVERLOAD
     Dosage: 30 MG/KG, DAILY (AT MORNING)
     Route: 048
     Dates: start: 2008, end: 2012
  2. ASUNRA [Suspect]
     Active Substance: DEFERASIROX
     Dosage: 30 MG/KG, DAILY (AT EVENING)
     Route: 048

REACTIONS (1)
  - Gastric disorder [Recovered/Resolved]
